FAERS Safety Report 24182921 (Version 1)
Quarter: 2024Q3

REPORT INFORMATION
  Report Type: Other
  Country: GB (occurrence: GB)
  Receive Date: 20240807
  Receipt Date: 20240807
  Transmission Date: 20241017
  Serious: Yes (Other)
  Sender: MACLEODS
  Company Number: None

PATIENT

DRUGS (2)
  1. TAMSULOSIN [Suspect]
     Active Substance: TAMSULOSIN
     Indication: Benign prostatic hyperplasia
     Dosage: ONE DAILY
     Route: 065
     Dates: start: 20240705
  2. LIDOCAINE [Concomitant]
     Active Substance: LIDOCAINE
     Indication: Adverse drug reaction

REACTIONS (4)
  - Dysphagia [Recovering/Resolving]
  - Chest pain [Recovering/Resolving]
  - Dyspnoea [Recovered/Resolved]
  - Swollen tongue [Recovering/Resolving]
